FAERS Safety Report 13734580 (Version 1)
Quarter: 2017Q3

REPORT INFORMATION
  Report Type: Report from Study
  Country: DE (occurrence: DE)
  Receive Date: 20170709
  Receipt Date: 20170709
  Transmission Date: 20171127
  Serious: Yes (Death, Hospitalization, Other)
  Sender: FDA-Public Use
  Company Number: PHHY2017DE059965

PATIENT
  Sex: Male
  Weight: 104 kg

DRUGS (3)
  1. DENOSUMAB [Concomitant]
     Active Substance: DENOSUMAB
     Indication: PRODUCT USED FOR UNKNOWN INDICATION
     Dosage: 120 MG, UNK
     Route: 065
     Dates: start: 20160601, end: 20170314
  2. PAZOPANIB [Suspect]
     Active Substance: PAZOPANIB
     Indication: RENAL CELL CARCINOMA
     Dosage: 600 MG, UNK
     Route: 065
     Dates: start: 20160406, end: 20160726
  3. AFINITOR [Suspect]
     Active Substance: EVEROLIMUS
     Indication: RENAL CELL CARCINOMA
     Dosage: 10 MG, UNK
     Route: 048
     Dates: start: 20160829, end: 20170330

REACTIONS (21)
  - Renal cell carcinoma [Fatal]
  - Tumour pain [Fatal]
  - Lethargy [Recovered/Resolved]
  - Fatigue [Unknown]
  - Metastases to adrenals [Fatal]
  - Decreased appetite [Unknown]
  - Metastases to stomach [Fatal]
  - Fatigue [Recovered/Resolved]
  - Dyspnoea [Unknown]
  - Oedema peripheral [Unknown]
  - Malignant neoplasm progression [Fatal]
  - Metastases to pleura [Fatal]
  - Diarrhoea [Recovered/Resolved]
  - Gastritis erosive [Unknown]
  - Asthenia [Recovered/Resolved]
  - Dysgeusia [Recovered/Resolved]
  - Malaise [Recovered/Resolved]
  - Decreased appetite [Recovered/Resolved]
  - Weight decreased [Recovered/Resolved]
  - Lymphoedema [Unknown]
  - Constipation [Unknown]

NARRATIVE: CASE EVENT DATE: 2016
